FAERS Safety Report 4821494-3 (Version None)
Quarter: 2005Q4

REPORT INFORMATION
  Report Type: 
  Country: None (occurrence: None)
  Receive Date: 20051107
  Receipt Date: 20051104
  Transmission Date: 20060501
  Serious: Yes (Death)
  Sender: FDA-Public Use
  Company Number: US-GLAXOSMITHKLINE-A0580952A

PATIENT
  Age: 51 Year
  Sex: Female

DRUGS (3)
  1. COREG [Suspect]
     Indication: ARRHYTHMIA
     Dosage: 6.25MG TWICE PER DAY
     Route: 048
     Dates: start: 20051007, end: 20051018
  2. DIOVAN [Concomitant]
  3. WELLBUTRIN XL [Concomitant]

REACTIONS (2)
  - DEATH [None]
  - MYOCARDIAL INFARCTION [None]
